FAERS Safety Report 5258439-0 (Version None)
Quarter: 2007Q1

REPORT INFORMATION
  Report Type: 
  Country: None (occurrence: None)
  Receive Date: 20070308
  Receipt Date: 20070301
  Transmission Date: 20070707
  Serious: Yes (Death)
  Sender: FDA-Public Use
  Company Number: CN-JNJFOC-20070300484

PATIENT
  Age: 67 Year
  Sex: Male

DRUGS (7)
  1. SPORANOX [Suspect]
     Indication: ASPERGILLOSIS
     Route: 042
     Dates: start: 20070217, end: 20070227
  2. LEVOFLOXACIN [Concomitant]
     Indication: RESPIRATORY TRACT INFECTION
     Route: 065
  3. CEFOPERAZONE SODIUM [Concomitant]
     Indication: RESPIRATORY TRACT INFECTION
     Route: 065
  4. AMIKACIN [Concomitant]
     Indication: RESPIRATORY TRACT INFECTION
     Route: 065
  5. IMIPENEM [Concomitant]
     Indication: RESPIRATORY TRACT INFECTION
     Route: 065
  6. CILASTATIN [Concomitant]
     Indication: RESPIRATORY TRACT INFECTION
     Route: 065
  7. SULBACTAM [Concomitant]
     Indication: RESPIRATORY TRACT INFECTION
     Route: 065

REACTIONS (1)
  - RENAL FAILURE [None]
